FAERS Safety Report 15798643 (Version 1)
Quarter: 2019Q1

REPORT INFORMATION
  Report Type: Spontaneous
  Country: US (occurrence: US)
  Receive Date: 20190108
  Receipt Date: 20190108
  Transmission Date: 20190417
  Serious: No
  Sender: FDA-Public Use
  Company Number: US-SA-2019SA002528

PATIENT
  Age: 19 Year
  Sex: Female

DRUGS (12)
  1. DUPIXENT [Suspect]
     Active Substance: DUPILUMAB
     Indication: DERMATITIS ATOPIC
     Dosage: 300 MG, QOW
     Route: 058
     Dates: start: 20181107
  2. ZIANA [Concomitant]
     Active Substance: CLINDAMYCIN PHOSPHATE\TRETINOIN
  3. FLULAVAL QUADRIVALENT 2015/2016 [Concomitant]
     Active Substance: INFLUENZA A VIRUS A/CALIFORNIA/7/2009 X-179A (H1N1) ANTIGEN (UV, FORMALDEHYDE INACTIVATED)\INFLUENZA A VIRUS A/SWITZERLAND/9715293/2013 NIB-88 (H3N2) ANTIGEN (UV, FORMALDEHYDE INACTIVATED)\INFLUENZA B VIRUS B/BRISBANE/60/2008 ANTIGEN (UV, FORMALDEHYDE INACTIVATED)\INFLUENZA B VIRUS B/PHUKET/3073/201
  4. LARIN 24 FE [Concomitant]
     Active Substance: ETHINYL ESTRADIOL\NORETHINDRONE ACETATE
  5. ACZONE [Concomitant]
     Active Substance: DAPSONE
  6. AZATHIOPRINE. [Concomitant]
     Active Substance: AZATHIOPRINE
  7. FLUOCINOLONE [Concomitant]
     Active Substance: FLUOCINOLONE
  8. TAZORAC [Concomitant]
     Active Substance: TAZAROTENE
  9. BUPROPION. [Concomitant]
     Active Substance: BUPROPION
  10. ESCITALOPRAM [Concomitant]
     Active Substance: ESCITALOPRAM OXALATE
  11. HYDROXYZINE [Concomitant]
     Active Substance: HYDROXYZINE HYDROCHLORIDE
  12. METHYLPHENIDATE. [Concomitant]
     Active Substance: METHYLPHENIDATE

REACTIONS (1)
  - Product dose omission [Unknown]
